FAERS Safety Report 5987014-5 (Version None)
Quarter: 2008Q4

REPORT INFORMATION
  Report Type: 
  Country: None (occurrence: None)
  Receive Date: 20081209
  Receipt Date: 20081202
  Transmission Date: 20090506
  Serious: Yes (Other)
  Sender: FDA-Public Use
  Company Number: B0545889A

PATIENT
  Age: 72 Year
  Sex: Male

DRUGS (14)
  1. VALTREX [Suspect]
     Indication: HERPES ZOSTER
     Dosage: 1000MG THREE TIMES PER DAY
     Route: 048
     Dates: start: 20081017, end: 20081020
  2. TOFRANIL [Suspect]
     Indication: DEPRESSION
     Dosage: 10MG TWICE PER DAY
     Route: 048
     Dates: start: 20081014, end: 20081020
  3. INSULIN [Concomitant]
     Indication: DIABETES MELLITUS
     Route: 058
  4. PENFILL 30R [Concomitant]
     Indication: DIABETES MELLITUS
     Route: 058
     Dates: start: 20081015, end: 20081020
  5. PRIMPERAN TAB [Concomitant]
     Indication: VOMITING
     Dosage: 10MG PER DAY
     Route: 065
     Dates: start: 20081015, end: 20081016
  6. BASEN [Concomitant]
     Indication: DIABETES MELLITUS
     Dosage: .6MG PER DAY
     Route: 048
     Dates: start: 20081016, end: 20081020
  7. OMEPRAL [Concomitant]
     Dosage: 10MG PER DAY
     Route: 048
     Dates: start: 20081014, end: 20081019
  8. ASPIRIN [Concomitant]
     Indication: CEREBRAL INFARCTION
     Dosage: 100MG PER DAY
     Route: 048
     Dates: start: 20081015, end: 20081020
  9. GASMOTIN [Concomitant]
     Indication: GASTRITIS
     Dosage: 15MG PER DAY
     Route: 048
     Dates: start: 20081014, end: 20081020
  10. CEROCRAL [Concomitant]
     Indication: CEREBRAL INFARCTION
     Dosage: 60MG PER DAY
     Route: 048
     Dates: start: 20081014, end: 20081020
  11. EPADEL S [Concomitant]
     Dosage: 1200MG PER DAY
     Route: 048
     Dates: start: 20081014, end: 20081020
  12. PROMAC [Concomitant]
     Indication: GASTRITIS
     Dosage: 1.5MG PER DAY
     Route: 048
     Dates: start: 20081014, end: 20081020
  13. UNKNOWN DRUG [Concomitant]
     Indication: CONSTIPATION
     Dosage: 1.8MG PER DAY
     Route: 048
     Dates: start: 20081014, end: 20081020
  14. ALOSENN [Concomitant]
     Indication: CONSTIPATION
     Dosage: 1.2G PER DAY
     Route: 048
     Dates: start: 20081014, end: 20081020

REACTIONS (8)
  - ATAXIA [None]
  - BLOOD GLUCOSE INCREASED [None]
  - DELIRIUM [None]
  - DISORIENTATION [None]
  - DYSARTHRIA [None]
  - RENAL FAILURE ACUTE [None]
  - RESTLESSNESS [None]
  - VOMITING [None]
